FAERS Safety Report 10461611 (Version 5)
Quarter: 2015Q3

REPORT INFORMATION
  Report Type: Report from Study
  Country: US (occurrence: US)
  Receive Date: 20140918
  Receipt Date: 20150827
  Transmission Date: 20151125
  Serious: Yes (Hospitalization)
  Sender: FDA-Public Use
  Company Number: US-ROCHE-1454539

PATIENT
  Age: 82 Year
  Sex: Female

DRUGS (40)
  1. GABAPENTIN. [Concomitant]
     Active Substance: GABAPENTIN
     Route: 048
     Dates: start: 2004, end: 20121027
  2. PREDNISOLONE ACETATE. [Concomitant]
     Active Substance: PREDNISOLONE ACETATE
     Dosage: 1 DROP
     Route: 047
     Dates: start: 20130415, end: 20130531
  3. SYSTANE BALANCE [Concomitant]
     Active Substance: PROPYLENE GLYCOL
     Dosage: 1 DROP
     Route: 047
     Dates: start: 20131019
  4. CIPRO [Concomitant]
     Active Substance: CIPROFLOXACIN HYDROCHLORIDE
     Indication: URINARY TRACT INFECTION
     Route: 048
     Dates: start: 20150708, end: 20150714
  5. PREDNISONE. [Concomitant]
     Active Substance: PREDNISONE
     Dosage: SINGLE DOSE
     Route: 048
     Dates: start: 20150113, end: 20150113
  6. ZESTORETIC [Concomitant]
     Active Substance: HYDROCHLOROTHIAZIDE\LISINOPRIL
     Route: 048
     Dates: start: 201201
  7. AZITHROMYCIN [Concomitant]
     Active Substance: AZITHROMYCIN ANHYDROUS
     Route: 048
     Dates: start: 20121207, end: 20121211
  8. CODEINE PHOSPHATE/GUAIFENESIN [Concomitant]
     Route: 048
     Dates: start: 20121207, end: 20121211
  9. ASPIRIN. [Concomitant]
     Active Substance: ASPIRIN
     Route: 048
     Dates: start: 20130507
  10. HYDRALAZINE [Concomitant]
     Active Substance: HYDRALAZINE HYDROCHLORIDE
     Route: 048
     Dates: start: 20150706, end: 20150708
  11. TOCILIZUMAB [Suspect]
     Active Substance: TOCILIZUMAB
     Indication: RHEUMATOID ARTHRITIS
     Dosage: MOST RECENT DOSE WAS TAKEN ON 06/AUG/2014
     Route: 042
  12. CYANOCOBALAMIN. [Concomitant]
     Active Substance: CYANOCOBALAMIN
     Route: 030
     Dates: start: 20120819
  13. ALBUTEROL. [Concomitant]
     Active Substance: ALBUTEROL
     Dosage: 2 PUFFS ROUTE:IH
     Route: 065
     Dates: start: 2008
  14. TRAMADOL. [Concomitant]
     Active Substance: TRAMADOL
     Route: 048
     Dates: start: 201205
  15. GABAPENTIN. [Concomitant]
     Active Substance: GABAPENTIN
     Route: 048
     Dates: start: 20121111, end: 20121218
  16. CEFTRIAXONE. [Concomitant]
     Active Substance: CEFTRIAXONE
     Route: 042
     Dates: start: 20150705, end: 20150708
  17. PREDNISONE. [Concomitant]
     Active Substance: PREDNISONE
     Route: 048
     Dates: start: 20120423
  18. ZOCOR [Concomitant]
     Active Substance: SIMVASTATIN
     Route: 048
     Dates: start: 2010
  19. BACLOFEN. [Concomitant]
     Active Substance: BACLOFEN
     Route: 048
     Dates: start: 20140818
  20. GABAPENTIN. [Concomitant]
     Active Substance: GABAPENTIN
     Route: 048
     Dates: start: 20121104, end: 20121110
  21. CIPROFLOXACIN HCL [Concomitant]
     Active Substance: CIPROFLOXACIN HYDROCHLORIDE
     Route: 048
     Dates: start: 20140307, end: 20140314
  22. NORMAL SALINE [Concomitant]
     Active Substance: SODIUM CHLORIDE
     Indication: ACUTE KIDNEY INJURY
     Route: 042
     Dates: start: 20150705, end: 20150706
  23. BACLOFEN. [Concomitant]
     Active Substance: BACLOFEN
     Route: 065
     Dates: start: 20130605, end: 20130609
  24. CYMBALTA [Concomitant]
     Active Substance: DULOXETINE HYDROCHLORIDE
     Route: 048
     Dates: start: 20131019
  25. METHOTREXATE [Concomitant]
     Active Substance: METHOTREXATE
     Route: 058
     Dates: start: 20120521
  26. PREDNISONE. [Concomitant]
     Active Substance: PREDNISONE
     Dosage: SINGLE DOSE
     Route: 048
     Dates: start: 20150112, end: 20150112
  27. PREDNISONE. [Concomitant]
     Active Substance: PREDNISONE
     Dosage: SINGLE DOSE
     Route: 048
     Dates: start: 20150116, end: 20150116
  28. PREDNISONE. [Concomitant]
     Active Substance: PREDNISONE
     Route: 048
     Dates: start: 20150117
  29. GABAPENTIN. [Concomitant]
     Active Substance: GABAPENTIN
     Route: 048
     Dates: start: 20121219
  30. GABAPENTIN. [Concomitant]
     Active Substance: GABAPENTIN
     Route: 048
     Dates: start: 20140818
  31. OFLOXACIN. [Concomitant]
     Active Substance: OFLOXACIN
     Dosage: 1 DROP
     Route: 047
     Dates: start: 20130415, end: 20130531
  32. OMEPRAZOLE. [Concomitant]
     Active Substance: OMEPRAZOLE
     Route: 048
     Dates: start: 2004
  33. PREDNISONE. [Concomitant]
     Active Substance: PREDNISONE
     Dosage: AS PRESCRIBED
     Route: 048
     Dates: start: 20150114, end: 20150114
  34. PREDNISONE. [Concomitant]
     Active Substance: PREDNISONE
     Dosage: SINGLE DOSE
     Route: 048
     Dates: start: 20150115, end: 20150115
  35. FOLIC ACID. [Concomitant]
     Active Substance: FOLIC ACID
     Route: 048
     Dates: start: 201201
  36. GABAPENTIN. [Concomitant]
     Active Substance: GABAPENTIN
     Route: 048
     Dates: start: 20121028, end: 20121103
  37. CODEINE PHOSPHATE/GUAIFENESIN [Concomitant]
     Route: 048
     Dates: start: 20121207, end: 20121211
  38. FLUOROMETHOLONE. [Concomitant]
     Active Substance: FLUOROMETHOLONE
     Dosage: 1 DROP
     Route: 047
     Dates: start: 20131019
  39. POTASSIUM CHLORIDE LIQUID [Concomitant]
     Indication: HYPOKALAEMIA
     Route: 048
     Dates: start: 20140817, end: 20140819
  40. HYDRALAZINE [Concomitant]
     Active Substance: HYDRALAZINE HYDROCHLORIDE
     Indication: HYPERTENSION
     Dosage: SINGLE DOSE
     Route: 042
     Dates: start: 20150706, end: 20150706

REACTIONS (1)
  - Mental status changes [Recovered/Resolved]

NARRATIVE: CASE EVENT DATE: 20140816
